FAERS Safety Report 4884490-6 (Version None)
Quarter: 2006Q1

REPORT INFORMATION
  Report Type: 
  Country: None (occurrence: None)
  Receive Date: 20060117
  Receipt Date: 20060104
  Transmission Date: 20060701
  Serious: Yes (Hospitalization, Other)
  Sender: FDA-Public Use
  Company Number: 2006AL000047

PATIENT
  Age: 34 Year
  Sex: Female

DRUGS (5)
  1. METFORMIN HYDROCHLORIDE [Suspect]
     Indication: DIABETES MELLITUS NON-INSULIN-DEPENDENT
  2. DIAZEPAM [Suspect]
  3. OLANZAPINE [Concomitant]
  4. ARIPIPRAZOLE [Concomitant]
  5. ROSIGLITAZONE [Concomitant]

REACTIONS (5)
  - DIABETIC KETOACIDOSIS [None]
  - HYPERGLYCAEMIA [None]
  - HYPOVOLAEMIA [None]
  - MALAISE [None]
  - METABOLIC ACIDOSIS [None]
